FAERS Safety Report 10022267 (Version 1)
Quarter: 2014Q1

REPORT INFORMATION
  Report Type: Report from Study
  Country: US (occurrence: US)
  Receive Date: 20140319
  Receipt Date: 20140319
  Transmission Date: 20141002
  Serious: Yes (Hospitalization)
  Sender: FDA-Public Use
  Company Number: US-BRISTOL-MYERS SQUIBB COMPANY-20461588

PATIENT
  Age: 64 Year
  Sex: Male
  Weight: 107.3 kg

DRUGS (1)
  1. IPILIMUMAB [Suspect]
     Indication: MALIGNANT MELANOMA
     Dosage: RECENT DOSE 19FEB14?TOTAL DOSE 329MG
     Route: 042
     Dates: start: 20131217

REACTIONS (1)
  - Lipase increased [Not Recovered/Not Resolved]
